FAERS Safety Report 5813027-X (Version None)
Quarter: 2008Q3

REPORT INFORMATION
  Report Type: 
  Country: None (occurrence: None)
  Receive Date: 20080717
  Receipt Date: 20071105
  Transmission Date: 20090109
  Serious: No
  Sender: FDA-Public Use
  Company Number: A0691405A

PATIENT
  Age: 55 Year
  Sex: Male

DRUGS (3)
  1. NICORETTE (MINT) [Suspect]
  2. COMMIT [Suspect]
     Indication: DRUG WITHDRAWAL MAINTENANCE THERAPY
  3. NICORETTE [Suspect]

REACTIONS (2)
  - INTENTIONAL DRUG MISUSE [None]
  - PAIN IN JAW [None]
